FAERS Safety Report 16583997 (Version 1)
Quarter: 2019Q3

REPORT INFORMATION
  Report Type: Spontaneous
  Country: US (occurrence: US)
  Receive Date: 20190716
  Receipt Date: 20190716
  Transmission Date: 20191004
  Serious: No
  Sender: FDA-Public Use
  Company Number: None

PATIENT
  Age: 28 Year
  Sex: Female
  Weight: 62.55 kg

DRUGS (2)
  1. MINASTRIN 24 FE [Concomitant]
     Active Substance: ETHINYL ESTRADIOL\NORETHINDRONE ACETATE
     Dates: start: 20160310, end: 20190401
  2. NORETHINDRONE 1 MG E. ESTRADIOL 20 MCG (24) - IRON 75 MG (4) CHEW TAB [Suspect]
     Active Substance: ETHINYL ESTRADIOL\FERROUS FUMARATE\NORETHINDRONE ACETATE
     Indication: CONTRACEPTION
     Route: 048

REACTIONS (2)
  - Nipple pain [None]
  - Headache [None]

NARRATIVE: CASE EVENT DATE: 20190401
